FAERS Safety Report 6557472-6 (Version None)
Quarter: 2010Q1

REPORT INFORMATION
  Report Type: 
  Country: None (occurrence: None)
  Receive Date: 20100127
  Receipt Date: 20100127
  Transmission Date: 20100710
  Serious: Yes (Hospitalization)
  Sender: FDA-Public Use
  Company Number: None

PATIENT
  Age: 88 Year
  Sex: Female
  Weight: 40.9 kg

DRUGS (13)
  1. EYE DROPS CONTAINING (PREDNISONE) [Suspect]
     Indication: CATARACT
     Dosage: ? ? OPTH, RECENT
     Route: 047
  2. TYLENOL-500 [Concomitant]
  3. ASPIRIN [Concomitant]
  4. CALCIUM [Concomitant]
  5. LASIX [Concomitant]
  6. ZESTRIL [Concomitant]
  7. ATIVAN [Concomitant]
  8. TOPROL-XL [Concomitant]
  9. M.V.I. [Concomitant]
  10. BRILOSEC [Concomitant]
  11. OXYCONTIN [Concomitant]
  12. REQUIP [Concomitant]
  13. SUSALATE [Concomitant]

REACTIONS (4)
  - DRUG HYPERSENSITIVITY [None]
  - NASOPHARYNGITIS [None]
  - PROCEDURAL HYPERTENSION [None]
  - PULSE ABSENT [None]
